FAERS Safety Report 25550518 (Version 1)
Quarter: 2025Q3

REPORT INFORMATION
  Report Type: Spontaneous
  Country: US (occurrence: US)
  Receive Date: 20250714
  Receipt Date: 20250714
  Transmission Date: 20251020
  Serious: No
  Sender: Haleon PLC
  Company Number: US-HALEON-2252317

PATIENT

DRUGS (2)
  1. ADVIL PM NOS [Suspect]
     Active Substance: DIPHENHYDRAMINE\IBUPROFEN
     Indication: Nausea
  2. ADVIL PM NOS [Suspect]
     Active Substance: DIPHENHYDRAMINE\IBUPROFEN
     Indication: Headache

REACTIONS (2)
  - Drug effective for unapproved indication [Unknown]
  - Product use in unapproved indication [Unknown]
